FAERS Safety Report 25314092 (Version 1)
Quarter: 2025Q2

REPORT INFORMATION
  Report Type: Spontaneous
  Country: US (occurrence: US)
  Receive Date: 20250514
  Receipt Date: 20250514
  Transmission Date: 20250716
  Serious: No
  Sender: PFIZER
  Company Number: US-PFIZER INC-PV202500057105

PATIENT
  Age: 64 Year
  Sex: Female

DRUGS (3)
  1. AZITHROMYCIN [Suspect]
     Active Substance: AZITHROMYCIN
     Dosage: 500 MG, DAILY
     Route: 048
     Dates: start: 20250206, end: 20250212
  2. RIFABUTIN [Suspect]
     Active Substance: RIFABUTIN
     Dosage: 300 MG, DAILY
     Route: 048
     Dates: start: 20250206, end: 20250212
  3. ETHAMBUTOL [Suspect]
     Active Substance: ETHAMBUTOL HYDROCHLORIDE
     Dosage: 800 MG, DAILY
     Dates: start: 20250206, end: 20250212

REACTIONS (3)
  - Pyrexia [Unknown]
  - Pain [Unknown]
  - Off label use [Unknown]

NARRATIVE: CASE EVENT DATE: 20250201
